FAERS Safety Report 17819281 (Version 1)
Quarter: 2020Q2

REPORT INFORMATION
  Report Type: Spontaneous
  Country: GB (occurrence: GB)
  Receive Date: 20200523
  Receipt Date: 20200523
  Transmission Date: 20200714
  Serious: Yes (Hospitalization, Other)
  Sender: FDA-Public Use
  Company Number: NVSC2020GB138129

PATIENT
  Age: 72 Year
  Sex: Male

DRUGS (1)
  1. ATORVASTATIN [Suspect]
     Active Substance: ATORVASTATIN
     Indication: HYPERCHOLESTEROLAEMIA
     Dosage: 20 MG (YEAR EARLIER AND STOPPED THIS 2 MONTHS BEFORE ADMISSION)
     Route: 065

REACTIONS (3)
  - Pneumonia [Recovering/Resolving]
  - Autoimmune myositis [Recovering/Resolving]
  - Necrotising myositis [Recovering/Resolving]
